FAERS Safety Report 9916404 (Version 1)
Quarter: 2014Q1

REPORT INFORMATION
  Report Type: Spontaneous
  Country: CA (occurrence: CA)
  Receive Date: 20140221
  Receipt Date: 20140221
  Transmission Date: 20141002
  Serious: Yes (Hospitalization, Other)
  Sender: FDA-Public Use
  Company Number: CA-SA-2014SA018548

PATIENT
  Age: 49 Year
  Sex: Male

DRUGS (11)
  1. OXALIPLATIN [Suspect]
     Indication: COLORECTAL CANCER METASTATIC
     Dosage: TREATMENT END DATE: 2013
     Route: 065
     Dates: start: 20130822
  2. FOLINIC ACID [Suspect]
     Indication: COLORECTAL CANCER METASTATIC
     Dosage: TREATMENT END DATE: 2013
     Route: 065
     Dates: start: 20130822
  3. FLUOROURACIL [Suspect]
     Indication: COLORECTAL CANCER METASTATIC
     Dosage: TREATMENT END DATE: 2013
     Route: 065
     Dates: start: 20130822
  4. AVASTIN [Suspect]
     Indication: COLORECTAL CANCER METASTATIC
     Dosage: FREQUENCY: Q2WEEKS
     Route: 065
     Dates: start: 20130905, end: 20131106
  5. FOLFOX-4 (FLUOROURACIL, FOLINIC ACID, OXALIPLATIN) [Concomitant]
  6. ONDANSETRON [Concomitant]
  7. PROCHLORPERAZINE [Concomitant]
  8. DILAUDID [Concomitant]
  9. PANTOLOC [Concomitant]
  10. IMODIUM [Concomitant]
  11. TINZAPARIN SODIUM [Concomitant]

REACTIONS (5)
  - Jaundice [Unknown]
  - Abdominal pain [Unknown]
  - Eye colour change [Unknown]
  - Nausea [Unknown]
  - Disease progression [Unknown]
